FAERS Safety Report 9258331 (Version 2)
Quarter: 2013Q2

REPORT INFORMATION
  Report Type: Spontaneous
  Country: US (occurrence: US)
  Receive Date: 20130426
  Receipt Date: 20130520
  Transmission Date: 20140414
  Serious: No
  Sender: FDA-Public Use
  Company Number: US-B.I. PHARMACEUTICALS,INC./RIDGEFIELD-2013-BI-10210BP

PATIENT
  Sex: Male

DRUGS (4)
  1. AGGRENOX [Suspect]
     Indication: CEREBROVASCULAR ACCIDENT PROPHYLAXIS
     Dosage: 25/200MG, 50/400MG
     Route: 048
  2. PERSANTINE [Suspect]
     Dosage: 150 MG
     Route: 048
     Dates: start: 20120112, end: 20120223
  3. LISINOPRIL [Concomitant]
     Indication: HYPERTENSION
     Dosage: 10 MG
     Route: 048
  4. ADVAIR [Concomitant]
     Indication: ASTHMA
     Route: 055

REACTIONS (5)
  - Headache [Not Recovered/Not Resolved]
  - Rash [Recovered/Resolved]
  - Dry skin [Not Recovered/Not Resolved]
  - Hypoacusis [Not Recovered/Not Resolved]
  - Amnesia [Not Recovered/Not Resolved]
